FAERS Safety Report 5624891-1 (Version None)
Quarter: 2008Q1

REPORT INFORMATION
  Report Type: 
  Country: None (occurrence: None)
  Receive Date: 20080208
  Receipt Date: 20080204
  Transmission Date: 20080703
  Serious: Yes (Hospitalization)
  Sender: FDA-Public Use
  Company Number: TPA2007A02367

PATIENT
  Age: 66 Year
  Sex: Male

DRUGS (1)
  1. ACTOS [Suspect]
     Dosage: UNK UNKNOWN PER ORAL
     Route: 048
     Dates: start: 20050818

REACTIONS (1)
  - MYOCARDIAL INFARCTION [None]
